FAERS Safety Report 4763718-7 (Version None)
Quarter: 2005Q3

REPORT INFORMATION
  Report Type: 
  Country: None (occurrence: None)
  Receive Date: 20050908
  Receipt Date: 20050620
  Transmission Date: 20060218
  Serious: Yes (Other)
  Sender: FDA-Public Use
  Company Number: DE-GLAXOSMITHKLINE-D0046874A

PATIENT
  Age: 63 Year
  Sex: Male
  Weight: 73 kg

DRUGS (6)
  1. AVODART [Suspect]
     Indication: PROSTATIC ADENOMA
     Dosage: .5MG PER DAY
     Route: 048
     Dates: start: 20041021, end: 20050715
  2. PROSCAR [Concomitant]
     Dosage: 5MG UNKNOWN
     Route: 065
  3. CENTRUM MULTIVITAMINS [Concomitant]
     Route: 065
  4. WOBENZYM [Concomitant]
     Dosage: 3TAB PER DAY
     Route: 065
  5. TOCOPHEROL CONCENTRATE CAP [Concomitant]
     Route: 065
  6. FLOTRIN [Concomitant]
     Dosage: 2MG PER DAY
     Route: 065

REACTIONS (2)
  - LYMPHOCYTOSIS [None]
  - NEUTROPENIA [None]
